FAERS Safety Report 16597716 (Version 1)
Quarter: 2019Q3

REPORT INFORMATION
  Report Type: Spontaneous
  Country: US (occurrence: US)
  Receive Date: 20190718
  Receipt Date: 20190718
  Transmission Date: 20191004
  Serious: Yes (Other)
  Sender: FDA-Public Use
  Company Number: None

PATIENT
  Age: 77 Year
  Sex: Male
  Weight: 98.1 kg

DRUGS (1)
  1. PREDNISONE. [Suspect]
     Active Substance: PREDNISONE
     Indication: DEAFNESS

REACTIONS (6)
  - Abdominal distension [None]
  - Headache [None]
  - Musculoskeletal stiffness [None]
  - Pain [None]
  - Abdominal pain upper [None]
  - Pyrexia [None]

NARRATIVE: CASE EVENT DATE: 20190717
